FAERS Safety Report 4284809-3 (Version None)
Quarter: 2004Q1

REPORT INFORMATION
  Report Type: 
  Country: None (occurrence: None)
  Receive Date: 20040203
  Receipt Date: 20040129
  Transmission Date: 20041129
  Serious: No
  Sender: FDA-Public Use
  Company Number: 7299

PATIENT
  Age: 16 Year
  Sex: Female

DRUGS (1)
  1. CYTARABINE [Suspect]
     Indication: ACUTE LYMPHOCYTIC LEUKAEMIA
     Dosage: 140 MG
     Route: 042
     Dates: start: 20031013, end: 20031017

REACTIONS (2)
  - MEDICATION ERROR [None]
  - NEUTROPENIA [None]
